FAERS Safety Report 4319793-7 (Version None)
Quarter: 2004Q1

REPORT INFORMATION
  Report Type: 
  Country: None (occurrence: None)
  Receive Date: 20040316
  Receipt Date: 20040301
  Transmission Date: 20041129
  Serious: Yes (Hospitalization)
  Sender: FDA-Public Use
  Company Number: 200401537

PATIENT
  Age: 59 Year
  Sex: Female

DRUGS (2)
  1. BOTOX COSMETIC [Suspect]
     Indication: SKIN WRINKLING
     Dates: start: 20031003
  2. MONOPRIL [Concomitant]

REACTIONS (5)
  - BURNING SENSATION [None]
  - DYSPNOEA [None]
  - ERYTHEMA [None]
  - PRURITUS GENERALISED [None]
  - SUNBURN [None]
